FAERS Safety Report 4730027-1 (Version None)
Quarter: 2005Q3

REPORT INFORMATION
  Report Type: 
  Country: None (occurrence: None)
  Receive Date: 20050728
  Receipt Date: 20050719
  Transmission Date: 20060218
  Serious: Yes (Death)
  Sender: FDA-Public Use
  Company Number: US-2005-014333

PATIENT
  Age: 48 Year
  Sex: Female
  Weight: 77.1 kg

DRUGS (2)
  1. BETAPACE [Suspect]
     Indication: ATRIAL FIBRILLATION
     Dosage: 80 MG, 2X/DAY, ORAL
     Route: 048
     Dates: start: 20030523, end: 20030529
  2. COUMADIN [Concomitant]

REACTIONS (2)
  - ARRHYTHMIA [None]
  - RENAL FAILURE [None]
